FAERS Safety Report 11968936 (Version 2)
Quarter: 2016Q1

REPORT INFORMATION
  Report Type: Spontaneous
  Country: JP (occurrence: JP)
  Receive Date: 20160128
  Receipt Date: 20160219
  Transmission Date: 20160526
  Serious: Yes (Other)
  Sender: FDA-Public Use
  Company Number: JP-BRISTOL-MYERS SQUIBB COMPANY-14804777

PATIENT
  Age: 0 Year
  Sex: Male
  Weight: 2.49 kg

DRUGS (5)
  1. ABILIFY [Suspect]
     Active Substance: ARIPIPRAZOLE
     Dosage: 6 MG, UNK
     Route: 064
     Dates: start: 20080808, end: 20080925
  2. KAYTWO N [Concomitant]
     Active Substance: MENATETRENONE
     Indication: PRODUCT USED FOR UNKNOWN INDICATION
     Dosage: UNK
     Route: 064
     Dates: start: 20090411, end: 20090411
  3. ABILIFY [Suspect]
     Active Substance: ARIPIPRAZOLE
     Indication: PRODUCT USED FOR UNKNOWN INDICATION
     Dosage: 12 MG, UNK
     Route: 064
     Dates: start: 20080725, end: 20080807
  4. ABILIFY [Suspect]
     Active Substance: ARIPIPRAZOLE
     Dosage: 12 MG, UNK
     Route: 064
     Dates: start: 20090113, end: 20090410
  5. ABILIFY [Suspect]
     Active Substance: ARIPIPRAZOLE
     Dosage: 12 MG, UNK
     Route: 064

REACTIONS (5)
  - Foetal exposure during pregnancy [Unknown]
  - Weight gain poor [Unknown]
  - Exposure during breast feeding [Unknown]
  - Jaundice neonatal [Unknown]
  - Low birth weight baby [Unknown]

NARRATIVE: CASE EVENT DATE: 2009
